FAERS Safety Report 8821107 (Version 2)
Quarter: 2012Q4

REPORT INFORMATION
  Report Type: 
  Country: JP (occurrence: JP)
  Receive Date: 20121002
  Receipt Date: 20121109
  Transmission Date: 20130627
  Serious: Yes (Disabling)
  Sender: FDA-Public Use
  Company Number: JP-GLAXOSMITHKLINE-B0822553A

PATIENT
  Sex: Female
  Weight: 43 kg

DRUGS (4)
  1. HEPSERA [Suspect]
     Indication: HEPATIC CIRRHOSIS
     Dosage: 1IUAX Per day
     Route: 048
     Dates: start: 20080307, end: 20120801
  2. ZEFIX [Suspect]
     Indication: HEPATIC CIRRHOSIS
     Route: 048
  3. GASTER [Concomitant]
     Indication: GASTRIC ULCER
     Dosage: 40MG Per day
     Route: 048
     Dates: start: 2008
  4. LIPITOR [Concomitant]
     Indication: HYPERLIPIDAEMIA
     Dosage: 10MG Per day
     Route: 048
     Dates: start: 2008

REACTIONS (7)
  - Osteomalacia [Not Recovered/Not Resolved]
  - Fanconi syndrome [Not Recovered/Not Resolved]
  - Metastases to bone [Unknown]
  - Compression fracture [Unknown]
  - Back pain [Unknown]
  - Arthralgia [Unknown]
  - Blood alkaline phosphatase increased [Unknown]
